FAERS Safety Report 23889665 (Version 3)
Quarter: 2024Q3

REPORT INFORMATION
  Report Type: Spontaneous
  Country: US (occurrence: US)
  Receive Date: 20240523
  Receipt Date: 20240816
  Transmission Date: 20241017
  Serious: No
  Sender: PFIZER
  Company Number: US-PFIZER INC-202400174456

PATIENT
  Age: 30 Year
  Sex: Female

DRUGS (2)
  1. CIBINQO [Suspect]
     Active Substance: ABROCITINIB
     Indication: Dermatitis atopic
     Dosage: UNK
  2. CIBINQO [Suspect]
     Active Substance: ABROCITINIB
     Dosage: 50 MG
     Route: 048

REACTIONS (2)
  - Illness [Unknown]
  - Feeling abnormal [Unknown]
